FAERS Safety Report 22136932 (Version 1)
Quarter: 2023Q1

REPORT INFORMATION
  Report Type: Spontaneous
  Country: JP (occurrence: JP)
  Receive Date: 20230324
  Receipt Date: 20230324
  Transmission Date: 20230418
  Serious: Yes (Other)
  Sender: FDA-Public Use
  Company Number: JP-BAUSCHBL-2023BNL002424

PATIENT
  Age: 77 Year
  Sex: Female

DRUGS (1)
  1. BEPOTASTINE [Suspect]
     Active Substance: BEPOTASTINE
     Indication: Product used for unknown indication
     Route: 048

REACTIONS (4)
  - Fasciitis [Unknown]
  - Pain [Unknown]
  - Arthralgia [Unknown]
  - Myalgia [Unknown]
